FAERS Safety Report 12551229 (Version 1)
Quarter: 2016Q3

REPORT INFORMATION
  Report Type: Spontaneous
  Country: US (occurrence: US)
  Receive Date: 20160713
  Receipt Date: 20160713
  Transmission Date: 20161109
  Serious: No
  Sender: FDA-Public Use
  Company Number: US-ALARA PHARMACEUTICAL CORPORATION-1054989

PATIENT
  Age: 58 Year
  Sex: Female
  Weight: 58.64 kg

DRUGS (3)
  1. LEVO-T [Suspect]
     Active Substance: LEVOTHYROXINE SODIUM
     Indication: HYPOTHYROIDISM
     Route: 048
  2. ASA [Concomitant]
     Active Substance: ASPIRIN
  3. RED YEAST [Concomitant]
     Active Substance: YEAST

REACTIONS (3)
  - Drug ineffective [Unknown]
  - Sluggishness [Recovered/Resolved]
  - Blood thyroid stimulating hormone decreased [Recovered/Resolved]
